FAERS Safety Report 8789353 (Version 1)
Quarter: 2012Q4

REPORT INFORMATION
  Report Type: Spontaneous
  Country: US (occurrence: None)
  Receive Date: 20120910
  Receipt Date: 20120910
  Transmission Date: 20130627
  Serious: Yes (Hospitalization)
  Sender: FDA-Public Use
  Company Number: None

PATIENT
  Age: 56 Year
  Sex: Female

DRUGS (1)
  1. HUMIRA PEN 40 MG [Suspect]
     Indication: PSORIASIS

REACTIONS (3)
  - Skin ulcer [None]
  - Dermatitis [None]
  - Gait disturbance [None]
